FAERS Safety Report 7539034-7 (Version None)
Quarter: 2011Q2

REPORT INFORMATION
  Report Type: 
  Country: None (occurrence: None)
  Receive Date: 20110524
  Receipt Date: 20110420
  Transmission Date: 20111010
  Serious: No
  Sender: FDA-Public Use
  Company Number: 031775

PATIENT
  Sex: Female
  Weight: 53.5 kg

DRUGS (4)
  1. CIMZIA [Suspect]
     Indication: RHEUMATOID ARTHRITIS
     Dosage: (400 MG 1X/4 WEEKS SUBCUTANEOUS)
     Route: 058
     Dates: start: 20110209
  2. ARAVA [Concomitant]
  3. TIMOLOL MALEATE [Concomitant]
  4. NABUMETONE [Concomitant]

REACTIONS (1)
  - LACRIMATION INCREASED [None]
